FAERS Safety Report 8107012-5 (Version None)
Quarter: 2012Q1

REPORT INFORMATION
  Report Type: 
  Country: None (occurrence: None)
  Receive Date: 20120202
  Receipt Date: 20120202
  Transmission Date: 20120608
  Serious: Yes (Other)
  Sender: FDA-Public Use
  Company Number: None

PATIENT
  Age: 22 Year
  Sex: Female
  Weight: 72.574 kg

DRUGS (1)
  1. LO/OVRAL-28 [Suspect]
     Indication: CONTRACEPTION
     Dosage: 28 PILLS
     Route: 048
     Dates: start: 20110418, end: 20110615

REACTIONS (2)
  - MEDICATION ERROR [None]
  - UNINTENDED PREGNANCY [None]
